FAERS Safety Report 9402513 (Version 2)
Quarter: 2013Q3

REPORT INFORMATION
  Report Type: Spontaneous
  Country: US (occurrence: US)
  Receive Date: 20130716
  Receipt Date: 20130719
  Transmission Date: 20140515
  Serious: No
  Sender: FDA-Public Use
  Company Number: US-PFIZER INC-2013207330

PATIENT
  Age: 56 Year
  Sex: Male

DRUGS (2)
  1. CADUET [Suspect]
     Indication: BLOOD CHOLESTEROL INCREASED
     Dosage: [AMLODIPINE 5 MG]/ [ATORVASTATIN10 MG], UNK
  2. CADUET [Suspect]
     Dosage: [AMLODIPINE 5 MG]/ [ATORVASTATIN10 MG], UNK
     Dates: start: 20110714, end: 20110724

REACTIONS (6)
  - Muscle spasms [Unknown]
  - Asthenia [Unknown]
  - Gait disturbance [Unknown]
  - Cardiac enzymes increased [Unknown]
  - Muscle enzyme increased [Unknown]
  - Fatigue [Unknown]
